FAERS Safety Report 7181032-X (Version None)
Quarter: 2010Q4

REPORT INFORMATION
  Report Type: 
  Country: None (occurrence: None)
  Receive Date: 20101221
  Receipt Date: 20100415
  Transmission Date: 20110411
  Serious: No
  Sender: FDA-Public Use
  Company Number: US-AMGEN-QUU406396

PATIENT

DRUGS (3)
  1. ENBREL [Suspect]
     Indication: PSORIASIS
     Dosage: UNK UNK, UNK
  2. IRBESARTAN [Concomitant]
     Dosage: UNK UNK, UNK
  3. ACIDOPHILUS [Concomitant]
     Dosage: UNK UNK, UNK

REACTIONS (5)
  - BLOOD GLUCOSE DECREASED [None]
  - CONTUSION [None]
  - GASTRIC DISORDER [None]
  - GASTROOESOPHAGEAL REFLUX DISEASE [None]
  - MASS [None]
